FAERS Safety Report 5119366-2 (Version None)
Quarter: 2006Q4

REPORT INFORMATION
  Report Type: 
  Country: None (occurrence: None)
  Receive Date: 20061003
  Receipt Date: 20060928
  Transmission Date: 20070319
  Serious: Yes (Other)
  Sender: FDA-Public Use
  Company Number: 2006UW18993

PATIENT
  Age: 44 Year
  Sex: Female
  Weight: 52.6 kg

DRUGS (8)
  1. TAMOXIFEN CITRATE [Suspect]
     Route: 048
     Dates: start: 20050401, end: 20060101
  2. TAMOXIFEN CITRATE [Suspect]
     Route: 048
     Dates: start: 20060101
  3. SINGULAIR [Concomitant]
  4. XANAX [Concomitant]
  5. ASTELIN [Concomitant]
  6. ADVAIR DISKUS 100/50 [Concomitant]
  7. VITAMINS [Concomitant]
  8. CALCIUM GLUCONATE [Concomitant]

REACTIONS (3)
  - DISEASE PROGRESSION [None]
  - METASTASES TO OVARY [None]
  - OVARIAN CANCER [None]
